FAERS Safety Report 10210718 (Version 1)
Quarter: 2014Q2

REPORT INFORMATION
  Report Type: Spontaneous
  Country: ES (occurrence: ES)
  Receive Date: 20140602
  Receipt Date: 20140602
  Transmission Date: 20141212
  Serious: Yes (Life-Threatening, Hospitalization)
  Sender: FDA-Public Use
  Company Number: PHHY2014ES062554

PATIENT
  Age: 85 Year
  Sex: Female

DRUGS (6)
  1. SINTROM [Suspect]
     Indication: ATRIAL FIBRILLATION
     Dosage: UNK UKN, UNK
     Dates: start: 20130611, end: 20130613
  2. AMOXICILLIN CLAVULANIC ACID SANDOZ [Suspect]
     Indication: URINARY TRACT INFECTION
     Dosage: UNK UKN, QD
     Route: 048
     Dates: start: 20130611, end: 20130613
  3. ENOXAPARIN [Suspect]
     Indication: ATRIAL FIBRILLATION
     Dosage: 60 MG, QD
     Route: 048
  4. DIGOXIN [Concomitant]
     Indication: ATRIAL FIBRILLATION
     Dosage: 12.5 MG, UNK
     Route: 048
     Dates: start: 20130611
  5. NITROGLYCERIN [Concomitant]
     Indication: CARDIAC FAILURE
     Dosage: 5 MG, QD
     Route: 062
     Dates: start: 20130611
  6. FUROSEMIDE [Concomitant]
     Indication: HYPERTENSION
     Dosage: 80 MG, UNK
     Route: 048
     Dates: start: 20130611, end: 20130616

REACTIONS (1)
  - Muscle haemorrhage [Recovering/Resolving]
